FAERS Safety Report 11322923 (Version 3)
Quarter: 2015Q3

REPORT INFORMATION
  Report Type: Report from Study
  Country: US (occurrence: US)
  Receive Date: 20150730
  Receipt Date: 20150911
  Transmission Date: 20151125
  Serious: Yes (Hospitalization)
  Sender: FDA-Public Use
  Company Number: US-BIOGENIDEC-2015BI106421

PATIENT
  Age: 58 Year
  Sex: Female
  Weight: 117 kg

DRUGS (21)
  1. TECFIDERA [Suspect]
     Active Substance: DIMETHYL FUMARATE
     Indication: MULTIPLE SCLEROSIS
     Route: 048
     Dates: start: 201506, end: 201506
  2. VITAMIN C [Concomitant]
     Active Substance: ASCORBIC ACID
     Dates: start: 2014
  3. METFORMIN [Concomitant]
     Active Substance: METFORMIN HYDROCHLORIDE
  4. VESICARE [Concomitant]
     Active Substance: SOLIFENACIN SUCCINATE
     Dates: start: 2014
  5. VITAMIN B12 [Concomitant]
     Active Substance: CYANOCOBALAMIN
     Dates: start: 2014
  6. NORCO [Concomitant]
     Active Substance: ACETAMINOPHEN\HYDROCODONE BITARTRATE
     Dates: start: 2011
  7. NAPROXEN. [Concomitant]
     Active Substance: NAPROXEN
  8. PREVACID [Concomitant]
     Active Substance: LANSOPRAZOLE
  9. VITAMIN A [Concomitant]
     Active Substance: VITAMIN A
     Dates: start: 2015
  10. TECFIDERA [Suspect]
     Active Substance: DIMETHYL FUMARATE
     Indication: MULTIPLE SCLEROSIS
     Route: 048
     Dates: start: 20150701, end: 201507
  11. CYMBALTA [Concomitant]
     Active Substance: DULOXETINE HYDROCHLORIDE
     Dates: start: 2012
  12. LASIX [Concomitant]
     Active Substance: FUROSEMIDE
     Dates: start: 2014
  13. VITAMIN D [Concomitant]
     Active Substance: CHOLECALCIFEROL
     Dates: start: 2014
  14. CLONAZEPAM. [Concomitant]
     Active Substance: CLONAZEPAM
     Dates: start: 2015
  15. HYDROCODONE [Concomitant]
     Active Substance: HYDROCODONE
  16. PRAVASTATIN [Concomitant]
     Active Substance: PRAVASTATIN\PRAVASTATIN SODIUM
  17. VITAMIN E [Concomitant]
     Active Substance: .ALPHA.-TOCOPHEROL
     Dates: start: 2015
  18. TECFIDERA [Suspect]
     Active Substance: DIMETHYL FUMARATE
     Indication: MULTIPLE SCLEROSIS
     Route: 048
     Dates: start: 20150623, end: 20150630
  19. AMPYRA [Concomitant]
     Active Substance: DALFAMPRIDINE
     Indication: MULTIPLE SCLEROSIS
     Route: 048
     Dates: start: 2013
  20. FERROUS SULFATE [Concomitant]
     Active Substance: FERROUS SULFATE\FERROUS SULFATE, DRIED
     Dates: start: 2015
  21. VITAMIN B [Concomitant]
     Active Substance: VITAMIN B
     Dates: start: 2015

REACTIONS (14)
  - Chest pain [Recovered/Resolved]
  - Pain in extremity [Recovered/Resolved]
  - Dyspnoea [Recovered/Resolved]
  - Underdose [Not Recovered/Not Resolved]
  - Depressed mood [Unknown]
  - Decreased interest [Unknown]
  - Hot flush [Recovered/Resolved]
  - Gait disturbance [Not Recovered/Not Resolved]
  - Cardiovascular symptom [Recovered/Resolved]
  - Depression [Unknown]
  - Asthenia [Recovered/Resolved]
  - Arthralgia [Unknown]
  - Fall [Recovered/Resolved]
  - Anxiety [Unknown]

NARRATIVE: CASE EVENT DATE: 201506
